FAERS Safety Report 9637456 (Version 2)
Quarter: 2014Q3

REPORT INFORMATION
  Report Type: Spontaneous
  Country: HK (occurrence: HK)
  Receive Date: 20131022
  Receipt Date: 20140806
  Transmission Date: 20150326
  Serious: Yes (Other)
  Sender: FDA-Public Use
  Company Number: HK-UCBSA-100848

PATIENT
  Age: 58 Year
  Sex: Male

DRUGS (2)
  1. OMEPRAZOLE. [Suspect]
     Active Substance: OMEPRAZOLE
     Indication: CHEST PAIN
     Dosage: UNKNOWN
  2. TRIMETAZIDINE HYDROCHLORIDE [Suspect]
     Active Substance: TRIMETAZIDINE DIHYDROCHLORIDE
     Indication: CHEST PAIN
     Dosage: UNKNOWN

REACTIONS (4)
  - Constipation [Recovered/Resolved]
  - Blindness [Recovered/Resolved]
  - Retinopathy [Unknown]
  - Retinal haemorrhage [Recovered/Resolved]
